FAERS Safety Report 8852191 (Version 2)
Quarter: 2012Q4

REPORT INFORMATION
  Report Type: 
  Country: US (occurrence: US)
  Receive Date: 20121022
  Receipt Date: 20121106
  Transmission Date: 20130627
  Serious: Yes (Other)
  Sender: FDA-Public Use
  Company Number: US-PFIZER INC-2012262231

PATIENT
  Age: 54 Year
  Sex: Female
  Weight: 78.46 kg

DRUGS (2)
  1. LYRICA [Suspect]
     Indication: DIABETIC PERIPHERAL NEUROPATHY
     Dosage: 60 mg, 3x/day
     Dates: start: 2011
  2. LYRICA [Suspect]
     Indication: PAIN
     Dosage: 100 mg, 3x/day

REACTIONS (4)
  - Rheumatoid arthritis [Unknown]
  - Osteoarthritis [Unknown]
  - Vision blurred [Unknown]
  - Nausea [Unknown]
